FAERS Safety Report 14147591 (Version 1)
Quarter: 2017Q4

REPORT INFORMATION
  Report Type: Spontaneous
  Country: PT (occurrence: PT)
  Receive Date: 20171031
  Receipt Date: 20171031
  Transmission Date: 20180321
  Serious: Yes (Other)
  Sender: FDA-Public Use
  Company Number: PT-SA-2017SA206732

PATIENT
  Age: 60 Year
  Sex: Male

DRUGS (21)
  1. FLURAZEPAM [Concomitant]
     Active Substance: FLURAZEPAM\FLURAZEPAM HYDROCHLORIDE
     Route: 048
     Dates: start: 20170724, end: 20170810
  2. ATORVASTATIN [Concomitant]
     Active Substance: ATORVASTATIN
     Route: 065
  3. CEFTRIAXONE. [Concomitant]
     Active Substance: CEFTRIAXONE
     Dosage: THE PATIENT DID FROM 14.07 TO 21.07 AND RESUMED FROM 28.07 TO 04.08
     Route: 042
     Dates: start: 20170714, end: 20170804
  4. MEXAZOLAM [Concomitant]
     Active Substance: MEXAZOLAM
     Route: 065
  5. RIFADIN [Suspect]
     Active Substance: RIFAMPIN
     Indication: ENDOCARDITIS
     Route: 048
     Dates: start: 20170703, end: 20170728
  6. ENOXAPARIN SODIUM. [Concomitant]
     Active Substance: ENOXAPARIN SODIUM
     Route: 058
     Dates: start: 20170714, end: 20170810
  7. LACTULOSE. [Concomitant]
     Active Substance: LACTULOSE
     Route: 048
     Dates: start: 20170714, end: 20170810
  8. PARACETAMOL [Concomitant]
     Active Substance: ACETAMINOPHEN
     Route: 048
     Dates: start: 20170719, end: 20170810
  9. VANCOMYCIN [Suspect]
     Active Substance: VANCOMYCIN
     Indication: ENDOCARDITIS
     Dosage: MARCAS LABESFAL E HIKMA. AJUSTADA A DOSE POR MONITORIZA??O S?RICA POR FARMAC?UTICO.
     Route: 042
     Dates: start: 20170703, end: 20170810
  10. BISOPROLOL [Concomitant]
     Active Substance: BISOPROLOL
     Route: 048
     Dates: start: 20170717, end: 20170810
  11. HYDROCHLOROTHIAZIDE/AMILORIDE [Concomitant]
     Route: 048
     Dates: start: 20170714, end: 20170719
  12. ACETYLSALICYLIC ACID [Concomitant]
     Active Substance: ASPIRIN
     Route: 048
     Dates: start: 20170719, end: 20170810
  13. CARVEDILOL. [Concomitant]
     Active Substance: CARVEDILOL
     Route: 065
  14. VANCOMYCIN [Suspect]
     Active Substance: VANCOMYCIN
     Indication: ENDOCARDITIS
     Dosage: MARCAS LABESFAL E HIKMA. AJUSTADA A DOSE POR MONITORIZA??O S?RICA POR FARMAC?UTICO.
     Route: 042
     Dates: start: 20170703, end: 20170810
  15. WARFARIN [Concomitant]
     Active Substance: WARFARIN
     Route: 065
  16. AMIODARON [Concomitant]
     Active Substance: AMIODARONE
     Route: 048
     Dates: start: 20170714, end: 20170724
  17. WARFARIN [Concomitant]
     Active Substance: WARFARIN
     Dosage: DOSE ADJUSTMENT DURING INTERNSHIP UP TO 12,5MG 1XDAY
     Route: 048
     Dates: start: 20170714, end: 20170810
  18. ROSUVASTATIN. [Concomitant]
     Active Substance: ROSUVASTATIN
     Route: 048
     Dates: start: 20170718, end: 20170810
  19. RAMIPRIL. [Concomitant]
     Active Substance: RAMIPRIL
     Route: 048
     Dates: start: 20170717, end: 20170810
  20. ESOMEPRAZOL [Concomitant]
     Active Substance: ESOMEPRAZOLE
     Route: 048
     Dates: start: 20170714, end: 20170810
  21. FUROSEMIDE. [Concomitant]
     Active Substance: FUROSEMIDE
     Dosage: 40 MG 1XDAY PO (5 DAYS) AND SWITCH TO 20 MG 1XDAY PO
     Route: 048
     Dates: start: 20170714, end: 20170810

REACTIONS (1)
  - Drug reaction with eosinophilia and systemic symptoms [Unknown]

NARRATIVE: CASE EVENT DATE: 20170724
